FAERS Safety Report 4557466-6 (Version None)
Quarter: 2005Q1

REPORT INFORMATION
  Report Type: 
  Country: None (occurrence: None)
  Receive Date: 20050103
  Receipt Date: 20041011
  Transmission Date: 20050727
  Serious: Yes (Other)
  Sender: FDA-Public Use
  Company Number: 2004UW19230

PATIENT
  Age: 72 Year
  Sex: Female
  Weight: 68.4932 kg

DRUGS (14)
  1. CRESTOR [Suspect]
     Indication: HYPERCHOLESTEROLAEMIA
     Dosage: 10 MG PO
     Route: 048
     Dates: start: 20031201, end: 20040909
  2. IMDUR [Concomitant]
  3. PLAVIX [Concomitant]
  4. LIBRAX [Concomitant]
  5. LOPRESSOR [Concomitant]
  6. MYACALCIN [Concomitant]
  7. ASPIRIN [Concomitant]
  8. XANAX [Concomitant]
  9. LEXAPRO [Concomitant]
  10. TRAZODONE HCL [Concomitant]
  11. ADVAIR DISKUS 100/50 [Concomitant]
  12. COMBIVENT [Concomitant]
  13. MAGNESIUM [Concomitant]
  14. CITRACAL [Concomitant]

REACTIONS (3)
  - MUSCULOSKELETAL STIFFNESS [None]
  - MYALGIA [None]
  - SENSATION OF HEAVINESS [None]
